FAERS Safety Report 14341236 (Version 1)
Quarter: 2018Q1

REPORT INFORMATION
  Report Type: Spontaneous
  Country: GB (occurrence: GB)
  Receive Date: 20180102
  Receipt Date: 20180102
  Transmission Date: 20180509
  Serious: Yes (Other)
  Sender: FDA-Public Use
  Company Number: GB-BEH-2017086357

PATIENT
  Age: 38 Year

DRUGS (1)
  1. RIASTAP [Suspect]
     Active Substance: FIBRINOGEN HUMAN
     Indication: FACTOR I DEFICIENCY

REACTIONS (2)
  - Thrombosis [Unknown]
  - Peripheral ischaemia [Unknown]
